FAERS Safety Report 19234013 (Version 1)
Quarter: 2021Q2

REPORT INFORMATION
  Report Type: Spontaneous
  Country: US (occurrence: US)
  Receive Date: 20210508
  Receipt Date: 20210508
  Transmission Date: 20210717
  Serious: Yes (Other)
  Sender: FDA-Public Use
  Company Number: US-TEVA-2021-US-1908992

PATIENT
  Age: 43 Year
  Sex: Female

DRUGS (1)
  1. WARFARIN TEVA [Suspect]
     Active Substance: WARFARIN SODIUM
     Indication: THROMBOSIS
     Dosage: 1 5MG TABLET AND 1 2.5 MG, 5 TIMES A WEEK AND 5 MG TWO TIMES A WEEK
     Route: 065
     Dates: start: 20210316

REACTIONS (2)
  - Drug ineffective [Unknown]
  - International normalised ratio decreased [Unknown]

NARRATIVE: CASE EVENT DATE: 202103
